FAERS Safety Report 4990631-2 (Version None)
Quarter: 2006Q2

REPORT INFORMATION
  Report Type: 
  Country: None (occurrence: None)
  Receive Date: 20060427
  Receipt Date: 20060418
  Transmission Date: 20061013
  Serious: Yes (Death, Hospitalization)
  Sender: FDA-Public Use
  Company Number: GXBR2006US00884

PATIENT
  Age: 77 Year
  Sex: Male

DRUGS (7)
  1. ANECTINE [Suspect]
     Indication: CARDIOVERSION
     Dosage: ONCE/SINGLE
     Dates: start: 20040301, end: 20040301
  2. VERSED [Concomitant]
  3. FENTANYL [Concomitant]
  4. TOPROL-XL [Concomitant]
  5. COUMADIN [Concomitant]
  6. DIGOXIN [Concomitant]
  7. THYROID THERAPY [Concomitant]

REACTIONS (11)
  - CARDIAC FAILURE [None]
  - CARDIOMYOPATHY [None]
  - DELIRIUM [None]
  - DRUG HYPERSENSITIVITY [None]
  - DYSPNOEA [None]
  - FAECAL INCONTINENCE [None]
  - GENERAL PHYSICAL HEALTH DETERIORATION [None]
  - HAEMOPTYSIS [None]
  - LOSS OF CONSCIOUSNESS [None]
  - RENAL FAILURE [None]
  - RESPIRATORY FAILURE [None]
